FAERS Safety Report 9160418 (Version 1)
Quarter: 2013Q1

REPORT INFORMATION
  Report Type: Spontaneous
  Country: GB (occurrence: None)
  Receive Date: 20130215
  Receipt Date: 20130215
  Transmission Date: 20140127
  Serious: Yes (Other)
  Sender: FDA-Public Use
  Company Number: AUR-APL-2013-01261

PATIENT
  Age: 40 Year
  Sex: Female
  Weight: 53.97 kg

DRUGS (7)
  1. AMOXICILLIN (AMOXICILLIN) [Suspect]
     Indication: PRODUCT USED FOR UNKNOWN INDICATION
     Dates: start: 20121126, end: 20121203
  2. AMITRIPTYLINE HYDROCHLORIDE (AMITRIPTYLINE HYDROCHLORIDE) [Concomitant]
  3. CETIRIZINE (CETIRIZINE) [Concomitant]
  4. CO-DYDRAMOL (PARAMOL-118) [Concomitant]
  5. FLUOXETINE (FLUOXETINE) [Concomitant]
  6. LANSOPRAZOLE (LANSOPRAZOLE) [Concomitant]
  7. PREGABALIN (PREGABALIN) [Concomitant]

REACTIONS (2)
  - Urticaria [None]
  - Pharyngeal oedema [None]
